FAERS Safety Report 8368518-7 (Version None)
Quarter: 2012Q2

REPORT INFORMATION
  Report Type: 
  Country: None (occurrence: None)
  Receive Date: 20120518
  Receipt Date: 20120514
  Transmission Date: 20120825
  Serious: Yes (Hospitalization)
  Sender: FDA-Public Use
  Company Number: IT-BIOGENIDEC-2012BI017105

PATIENT
  Age: 50 Year
  Sex: Female

DRUGS (1)
  1. TYSABRI [Suspect]
     Indication: MULTIPLE SCLEROSIS
     Route: 042
     Dates: start: 20071022, end: 20120322

REACTIONS (4)
  - PARAPLEGIA [None]
  - MUSCULAR WEAKNESS [None]
  - SENSORY LOSS [None]
  - MULTIPLE SCLEROSIS RELAPSE [None]
